FAERS Safety Report 4891792-6 (Version None)
Quarter: 2006Q1

REPORT INFORMATION
  Report Type: 
  Country: None (occurrence: None)
  Receive Date: 20060123
  Receipt Date: 20060110
  Transmission Date: 20060701
  Serious: Yes (Other)
  Sender: FDA-Public Use
  Company Number: 2006-DE-00124GD

PATIENT

DRUGS (3)
  1. ZIDOVUDINE [Suspect]
     Indication: HIV INFECTION
  2. LAMIVUDINE [Suspect]
     Indication: HIV INFECTION
  3. KALETRA [Suspect]
     Indication: HIV INFECTION

REACTIONS (2)
  - DRUG INEFFECTIVE [None]
  - GENE MUTATION [None]
